FAERS Safety Report 10411816 (Version 1)
Quarter: 2014Q2

REPORT INFORMATION
  Report Type: Spontaneous
  Country: US (occurrence: None)
  Receive Date: 20140514
  Receipt Date: 20140514
  Transmission Date: 20141212
  Serious: Yes (Hospitalization)
  Sender: FDA-Public Use
  Company Number: 108803

PATIENT
  Age: 24 Year
  Sex: Female

DRUGS (1)
  1. CIMZIA [Suspect]
     Indication: CROHN^S DISEASE
     Dosage: 200 MG 1X/2 WEEKS SUBCUTANEOUS
     Dates: start: 201307, end: 201310

REACTIONS (3)
  - Ileectomy [None]
  - Back pain [None]
  - Migraine [None]
